FAERS Safety Report 6215056-3 (Version None)
Quarter: 2009Q2

REPORT INFORMATION
  Report Type: 
  Country: None (occurrence: None)
  Receive Date: 20090604
  Receipt Date: 20090126
  Transmission Date: 20091009
  Serious: Yes (Other)
  Sender: FDA-Public Use
  Company Number: US-ASTRAZENECA-2009UW02171

PATIENT
  Age: 75 Year
  Sex: Male

DRUGS (1)
  1. OMEPRAZOLE [Suspect]
     Route: 048

REACTIONS (1)
  - DRUG INEFFECTIVE [None]
